FAERS Safety Report 20774104 (Version 1)
Quarter: 2022Q2

REPORT INFORMATION
  Report Type: Spontaneous
  Country: US (occurrence: US)
  Receive Date: 20220502
  Receipt Date: 20220502
  Transmission Date: 20220721
  Serious: Yes (Other)
  Sender: FDA-Public Use
  Company Number: US-BRISTOL-MYERS SQUIBB COMPANY-2022-027590

PATIENT
  Age: 50 Year
  Sex: Male

DRUGS (2)
  1. REVLIMID [Suspect]
     Active Substance: LENALIDOMIDE
     Indication: Plasma cell myeloma
     Dosage: FOR 14 DAYS WITH 7 DAY BREAK
     Route: 048
     Dates: start: 20220111
  2. REVLIMID [Suspect]
     Active Substance: LENALIDOMIDE
     Indication: Bone neoplasm

REACTIONS (2)
  - Adverse event [Unknown]
  - Intentional product use issue [Unknown]
